FAERS Safety Report 5297341-5 (Version None)
Quarter: 2007Q2

REPORT INFORMATION
  Report Type: 
  Country: None (occurrence: None)
  Receive Date: 20070416
  Receipt Date: 20070410
  Transmission Date: 20071010
  Serious: Yes (Death, Hospitalization)
  Sender: FDA-Public Use
  Company Number: US-BAYER-200615357BWH

PATIENT
  Age: 54 Year
  Sex: Male
  Weight: 84 kg

DRUGS (2)
  1. NEXAVAR [Suspect]
     Indication: RENAL CELL CARCINOMA STAGE UNSPECIFIED
     Dosage: TOTAL DAILY DOSE: 1600 MG  UNIT DOSE: 200 MG
     Route: 048
     Dates: start: 20060601
  2. NORVASC [Concomitant]
     Route: 048
     Dates: start: 20060701

REACTIONS (7)
  - ASTHENIA [None]
  - DEATH [None]
  - FATIGUE [None]
  - HYPERTENSION [None]
  - PULMONARY OEDEMA [None]
  - SOMNOLENCE [None]
  - SPUTUM DISCOLOURED [None]
